FAERS Safety Report 10871413 (Version 1)
Quarter: 2015Q1

REPORT INFORMATION
  Report Type: Spontaneous
  Country: US (occurrence: US)
  Receive Date: 20150226
  Receipt Date: 20150226
  Transmission Date: 20150721
  Serious: Yes (Hospitalization, Congenital Anomaly, Other)
  Sender: FDA-Public Use
  Company Number: US-APOTEX-2015AP006917

PATIENT
  Sex: Female
  Weight: 1 kg

DRUGS (3)
  1. PAXIL [Suspect]
     Active Substance: PAROXETINE HYDROCHLORIDE
     Indication: DEPRESSION
     Dosage: 40 MG, DAILY
     Route: 064
     Dates: start: 20020325, end: 20020622
  2. SEROQUEL [Concomitant]
     Active Substance: QUETIAPINE FUMARATE
     Indication: DEPRESSION
     Route: 064
  3. MARIJUANA [Concomitant]
     Active Substance: CANNABIS SATIVA SUBSP. INDICA TOP
     Indication: PRODUCT USED FOR UNKNOWN INDICATION
     Route: 064

REACTIONS (7)
  - Pulmonary valve stenosis congenital [Unknown]
  - Developmental delay [Unknown]
  - Attention deficit/hyperactivity disorder [Unknown]
  - Asthma [Unknown]
  - Foetal exposure during pregnancy [Unknown]
  - Retinopathy of prematurity [Unknown]
  - Atrial septal defect [Unknown]
